FAERS Safety Report 5202391-0 (Version None)
Quarter: 2006Q4

REPORT INFORMATION
  Report Type: 
  Country: None (occurrence: None)
  Receive Date: 20061012
  Receipt Date: 20060716
  Transmission Date: 20070319
  Serious: No
  Sender: FDA-Public Use
  Company Number: 2006S1000138

PATIENT
  Age: 78 Year
  Sex: Female
  Weight: 77.27 kg

DRUGS (2)
  1. CUBICIN [Suspect]
     Indication: STAPHYLOCOCCAL INFECTION
     Dosage: UNKNOWN;Q24H;IV
     Route: 042
     Dates: start: 20060501
  2. CUBICIN [Suspect]
     Indication: WOUND
     Dosage: UNKNOWN;Q24H;IV
     Route: 042
     Dates: start: 20060501

REACTIONS (2)
  - FATIGUE [None]
  - LETHARGY [None]
